FAERS Safety Report 6243968-3 (Version None)
Quarter: 2009Q2

REPORT INFORMATION
  Report Type: 
  Country: None (occurrence: None)
  Receive Date: 20090623
  Receipt Date: 20090609
  Transmission Date: 20091009
  Serious: Yes (Other)
  Sender: FDA-Public Use
  Company Number: 2009-198517-NL

PATIENT
  Sex: Female

DRUGS (1)
  1. IMPLANON [Suspect]

REACTIONS (1)
  - CENTRAL NERVOUS SYSTEM LESION [None]
